FAERS Safety Report 19569285 (Version 1)
Quarter: 2021Q3

REPORT INFORMATION
  Report Type: Spontaneous
  Country: NL (occurrence: NL)
  Receive Date: 20210716
  Receipt Date: 20210716
  Transmission Date: 20211014
  Serious: Yes (Other)
  Sender: FDA-Public Use
  Company Number: NL-MYLANLABS-2021M1041994

PATIENT
  Sex: Male

DRUGS (3)
  1. OXYCODON [Concomitant]
     Active Substance: OXYCODONE
     Dosage: 5 MILLIGRAM  (TABLET)
  2. CLINDAMYCIN. [Suspect]
     Active Substance: CLINDAMYCIN
     Indication: INFECTION
     Dosage: 300 MILLIGRAM, Q8H (3 X PER DAY 1 CAPSULE)
     Dates: start: 20210331, end: 20210404
  3. FEXOFENADINE [Concomitant]
     Active Substance: FEXOFENADINE HYDROCHLORIDE
     Dosage: 180 MILLIGRAM COATED TABLET, 180 MG (MILLIGRAM)

REACTIONS (2)
  - Haematochezia [Recovered/Resolved]
  - Diarrhoea [Unknown]
